FAERS Safety Report 19429379 (Version 5)
Quarter: 2025Q3

REPORT INFORMATION
  Report Type: Report from Study
  Country: US (occurrence: US)
  Receive Date: 20210617
  Receipt Date: 20250710
  Transmission Date: 20251021
  Serious: Yes (Other)
  Sender: JAZZ
  Company Number: US-GW PHARMA-202106USGW02876

PATIENT
  Age: 23 Year
  Sex: Female
  Weight: 89.8 kg

DRUGS (8)
  1. EPIDIOLEX [Suspect]
     Active Substance: CANNABIDIOL
     Indication: Tuberous sclerosis complex
     Dosage: 5.01 MG/KG/DAY, 225 MILLIGRAM, BID
     Route: 048
     Dates: start: 202105, end: 202106
  2. EPIDIOLEX [Suspect]
     Active Substance: CANNABIDIOL
     Indication: Epilepsy
     Dosage: 10.02 MG/KG/DAY, 450 MILLIGRAM, BID
     Route: 048
     Dates: start: 202106
  3. EPIDIOLEX [Suspect]
     Active Substance: CANNABIDIOL
     Indication: Infantile spasms
     Dosage: 5 MILLILITER, BID
     Route: 054
  4. ONFI [Concomitant]
     Active Substance: CLOBAZAM
     Indication: Product used for unknown indication
  5. RUFINAMIDE [Concomitant]
     Active Substance: RUFINAMIDE
     Indication: Product used for unknown indication
     Dosage: 800 MILLIGRAM, TID
  6. VIMPAT [Concomitant]
     Active Substance: LACOSAMIDE
     Indication: Product used for unknown indication
  7. VIMPAT [Concomitant]
     Active Substance: LACOSAMIDE
  8. VIMPAT [Concomitant]
     Active Substance: LACOSAMIDE

REACTIONS (5)
  - Seizure [Unknown]
  - Partial seizures [Unknown]
  - Abnormal behaviour [Unknown]
  - Incorrect route of product administration [Unknown]
  - Product administration interrupted [Unknown]

NARRATIVE: CASE EVENT DATE: 20210601
